FAERS Safety Report 10051298 (Version 1)
Quarter: 2014Q2

REPORT INFORMATION
  Report Type: Spontaneous
  Country: US (occurrence: US)
  Receive Date: 20140401
  Receipt Date: 20140401
  Transmission Date: 20141212
  Serious: No
  Sender: FDA-Public Use
  Company Number: US-PFIZER INC-2014088592

PATIENT
  Age: 46 Year
  Sex: Female

DRUGS (6)
  1. CLONAZEPAM [Suspect]
     Indication: TREMOR
     Dosage: UNK
  2. CLONAZEPAM [Suspect]
     Indication: RESTLESS LEGS SYNDROME
  3. GABAPENTIN [Suspect]
     Indication: NEUROPATHY PERIPHERAL
     Dosage: UNK
     Dates: end: 2013
  4. HYDROCODONE [Suspect]
     Indication: PAIN IN EXTREMITY
     Dosage: 7.5 MG, 2X/DAY
  5. LEVOTHYROXINE [Concomitant]
     Indication: THYROID DISORDER
     Dosage: UNK
  6. CYTOMEL [Concomitant]
     Indication: THYROID DISORDER
     Dosage: UNK

REACTIONS (2)
  - Feeling abnormal [Unknown]
  - Feeling drunk [Unknown]
